FAERS Safety Report 25786592 (Version 6)
Quarter: 2025Q4

REPORT INFORMATION
  Report Type: Spontaneous
  Country: CA (occurrence: CA)
  Receive Date: 20250910
  Receipt Date: 20251105
  Transmission Date: 20260117
  Serious: Yes (Hospitalization, Other)
  Sender: PFIZER
  Company Number: CA-PFIZER INC-202500155300

PATIENT
  Age: 22 Year
  Sex: Male

DRUGS (4)
  1. IXIFI [Suspect]
     Active Substance: INFLIXIMAB-QBTX
     Indication: Crohn^s disease
     Dosage: 10 MG/KG, EVERY 8 WEEKS
     Route: 042
     Dates: start: 20250710, end: 20250710
  2. IXIFI [Suspect]
     Active Substance: INFLIXIMAB-QBTX
     Dosage: 620 MG, EVERY 8 WEEKS ,(10 MG/KG, EVERY 8 WEEKS)
     Route: 042
     Dates: start: 20250904
  3. IXIFI [Suspect]
     Active Substance: INFLIXIMAB-QBTX
     Dosage: 600 MG, AFTER 4 WEEKS
     Route: 042
     Dates: start: 20251002
  4. PREDNISONE [Concomitant]
     Active Substance: PREDNISONE
     Dosage: 1 DF
     Dates: start: 2024

REACTIONS (6)
  - Condition aggravated [Recovering/Resolving]
  - Abdominal abscess [Recovered/Resolved]
  - Mesenteric vein thrombosis [Recovered/Resolved]
  - Infected fistula [Not Recovered/Not Resolved]
  - Gastrointestinal infection [Recovering/Resolving]
  - Off label use [Unknown]

NARRATIVE: CASE EVENT DATE: 20250101
